FAERS Safety Report 9713594 (Version 1)
Quarter: 2013Q4

REPORT INFORMATION
  Report Type: Spontaneous
  Country: US (occurrence: None)
  Receive Date: 20131125
  Receipt Date: 20131125
  Transmission Date: 20140711
  Serious: No
  Sender: FDA-Public Use
  Company Number: None

PATIENT
  Age: 67 Year
  Sex: Male
  Weight: 83.2 kg

DRUGS (1)
  1. BUPROPION 150MG XL ? GENERIC [Suspect]
     Indication: DEPRESSION
     Route: 048
     Dates: start: 20090126, end: 20121024

REACTIONS (2)
  - Convulsion [None]
  - Binge drinking [None]
